FAERS Safety Report 9198345 (Version 1)
Quarter: 2013Q1

REPORT INFORMATION
  Report Type: Spontaneous
  Country: US (occurrence: None)
  Receive Date: 20130327
  Receipt Date: 20130327
  Transmission Date: 20140127
  Serious: Yes (Other)
  Sender: FDA-Public Use
  Company Number: None

PATIENT
  Sex: Female
  Weight: 68 kg

DRUGS (1)
  1. J+J BABY HEAD TO TOE BABY WASH [Suspect]
     Indication: ACCIDENTAL EXPOSURE TO PRODUCT
     Dates: start: 20130211, end: 20130211

REACTIONS (3)
  - Accidental exposure to product [None]
  - Dyspnoea [None]
  - Hypersensitivity [None]
